FAERS Safety Report 9524788 (Version 1)
Quarter: 2013Q1

REPORT INFORMATION
  Report Type: Spontaneous
  Country: US (occurrence: None)
  Receive Date: 20130313
  Receipt Date: 20130313
  Transmission Date: 20140127
  Serious: No
  Sender: FDA-Public Use
  Company Number: 1000031468

PATIENT
  Age: 47 Year
  Sex: Female
  Weight: 66 kg

DRUGS (1)
  1. SAVELLA (MILNACIPRAN HYDROCHLORIDE) (12.5 MILLIGRAM, TABLETS) [Suspect]
     Indication: FIBROMYALGIA
     Dosage: 12.5 MG, 1 IN 1 D
     Route: 048
     Dates: start: 20120601, end: 20120601

REACTIONS (10)
  - Nausea [None]
  - Hot flush [None]
  - Dizziness [None]
  - Piloerection [None]
  - Chills [None]
  - Paraesthesia [None]
  - Tinnitus [None]
  - Insomnia [None]
  - Headache [None]
  - Anxiety [None]
